FAERS Safety Report 8581202-X (Version None)
Quarter: 2012Q3

REPORT INFORMATION
  Report Type: 
  Country: None (occurrence: None)
  Receive Date: 20120727
  Receipt Date: 20120709
  Transmission Date: 20120928
  Serious: Yes (Hospitalization)
  Sender: FDA-Public Use
  Company Number: 2012-287

PATIENT
  Age: 54 Year
  Sex: Female
  Weight: 101 kg

DRUGS (20)
  1. DOCUSATE SODIUM [Concomitant]
  2. OYSTER SHELL CALCIUM (CALCIUM CARBONATE) [Concomitant]
  3. HALOPERIDOL [Concomitant]
  4. LORAZEPAM [Concomitant]
  5. DEPAKOTE [Concomitant]
  6. METOPROLOL SUCCINATE [Concomitant]
  7. LITHIUM CARBONATE [Concomitant]
  8. SIMVASTATIN [Concomitant]
  9. ALLOPURINOL [Concomitant]
  10. VITAMIN D [Concomitant]
  11. ZOLPIDEM TARTRATE [Concomitant]
  12. AMLODIPINE [Concomitant]
  13. ASPIRIN [Concomitant]
  14. BENZTROPINE MESYLATE [Concomitant]
  15. FAZACLO ODT [Suspect]
     Indication: SCHIZOPHRENIA, PARANOID TYPE
     Dosage: 450-700 MG, QD, ORAL
     Route: 048
     Dates: start: 20110904, end: 20120607
  16. MAGNESIUM OXIDE [Concomitant]
  17. SENNA PLUS (SENNA ALEXANDRINA) [Concomitant]
  18. VITAMIN A + D (ERGOCALCIFEROL, RETINOL) [Concomitant]
  19. TRAVATAN Z [Concomitant]
  20. FAMOTIDINE [Concomitant]

REACTIONS (6)
  - AGITATION [None]
  - DIET REFUSAL [None]
  - WEIGHT DECREASED [None]
  - DELIRIUM [None]
  - AGGRESSION [None]
  - PSYCHOTIC DISORDER [None]
